FAERS Safety Report 19519923 (Version 1)
Quarter: 2021Q3

REPORT INFORMATION
  Report Type: Spontaneous
  Country: GB (occurrence: GB)
  Receive Date: 20210712
  Receipt Date: 20210712
  Transmission Date: 20211014
  Serious: Yes (Hospitalization, Other)
  Sender: FDA-Public Use
  Company Number: GB-SA-2021SA219994

PATIENT
  Age: 78 Year
  Sex: Male

DRUGS (11)
  1. FRUSEMIDE [FUROSEMIDE] [Concomitant]
     Active Substance: FUROSEMIDE
  2. OXYCODONE [Concomitant]
     Active Substance: OXYCODONE
  3. OMEPRAZOLE. [Concomitant]
     Active Substance: OMEPRAZOLE
  4. ATORVASTATIN [Concomitant]
     Active Substance: ATORVASTATIN
  5. FUROSEMIDE. [Concomitant]
     Active Substance: FUROSEMIDE
  6. ATENOLOL. [Concomitant]
     Active Substance: ATENOLOL
  7. KEVZARA [Suspect]
     Active Substance: SARILUMAB
     Indication: RHEUMATOID ARTHRITIS
     Dosage: UNK
     Route: 058
     Dates: start: 20191120, end: 20201107
  8. AMLODIPINE [Concomitant]
     Active Substance: AMLODIPINE BESYLATE
  9. LOSARTAN. [Concomitant]
     Active Substance: LOSARTAN
  10. APIXABAN [Concomitant]
     Active Substance: APIXABAN
  11. NICORANDIL [Concomitant]
     Active Substance: NICORANDIL

REACTIONS (9)
  - Cholecystitis acute [Unknown]
  - COVID-19 pneumonia [Unknown]
  - Pseudomonas infection [Unknown]
  - Cholelithiasis [Unknown]
  - Procedural vomiting [Unknown]
  - Post procedural complication [Unknown]
  - Abdominal pain [Unknown]
  - Respiratory failure [Unknown]
  - Dyspnoea [Unknown]

NARRATIVE: CASE EVENT DATE: 20201105
